FAERS Safety Report 17778666 (Version 2)
Quarter: 2020Q2

REPORT INFORMATION
  Report Type: Spontaneous
  Country: US (occurrence: US)
  Receive Date: 20200513
  Receipt Date: 20200521
  Transmission Date: 20200714
  Serious: Yes (Hospitalization)
  Sender: FDA-Public Use
  Company Number: US-VERTEX PHARMACEUTICALS-2020-010571

PATIENT
  Age: 45 Year
  Sex: Female

DRUGS (27)
  1. DICYCLOMINE [Concomitant]
     Active Substance: DICYCLOMINE HYDROCHLORIDE
     Dosage: 10 MG
  2. MIRTAZAPINE. [Concomitant]
     Active Substance: MIRTAZAPINE
     Dosage: 15 MG
  3. PANCRELIPASE. [Concomitant]
     Active Substance: PANCRELIPASE
     Dosage: 1 CAP 6000 WITH EACH MEAL ALONG WITH CREON 24000
  4. TRIKAFTA [Suspect]
     Active Substance: ELEXACAFTOR\IVACAFTOR\TEZACAFTOR
     Indication: CYSTIC FIBROSIS
     Dosage: 2 TABS (100 MG ELEXACAFTOR/50 MG TEZACAFTOR/75 MG IVACAFTOR) AM AND 1 TAB (150 MG IVACAFTOR) PM
     Route: 048
     Dates: start: 20191203, end: 20200423
  5. AZITHROMYCIN ANHYDROUS. [Concomitant]
     Active Substance: AZITHROMYCIN ANHYDROUS
     Dosage: 1 TAB EVERY M-W-F
     Route: 048
  6. FLEXERIL [Concomitant]
     Active Substance: CYCLOBENZAPRINE HYDROCHLORIDE
  7. SODIUM CHLORIDE. [Concomitant]
     Active Substance: SODIUM CHLORIDE
     Indication: NASAL CONGESTION
     Dosage: 1 SPRAY BY NASAL ROUTE 4 TIMES DAILY
  8. INSULIN GLARGINE [Concomitant]
     Active Substance: INSULIN GLARGINE
     Dosage: 12 UNITS NIGHTLY AS NEEDED
     Route: 058
  9. MONTELUKAST [Concomitant]
     Active Substance: MONTELUKAST SODIUM
     Dosage: 1 TAB, QD
     Route: 048
  10. PREGABALIN. [Concomitant]
     Active Substance: PREGABALIN
  11. PIPERACILLIN AND TAZOBACTAM [Concomitant]
     Active Substance: PIPERACILLIN SODIUM\TAZOBACTAM SODIUM
     Dosage: 3.375 GRAM EVERY 8 HOURS FOR 10 DAYS
     Route: 042
  12. DIPHENHYDRAMINE. [Concomitant]
     Active Substance: DIPHENHYDRAMINE
     Dosage: 50 MG
  13. FERROUS SULFATE. [Concomitant]
     Active Substance: FERROUS SULFATE
     Dosage: 325 MG
  14. INSULIN LISPRO [Concomitant]
     Active Substance: INSULIN LISPRO
     Dosage: 100 UNIT/ML
  15. TRAMADOL HCL [Concomitant]
     Active Substance: TRAMADOL HYDROCHLORIDE
     Route: 048
  16. DEKA [Concomitant]
     Dosage: 1 CAPSULE, BID
     Route: 048
  17. LEXAPRO [Concomitant]
     Active Substance: ESCITALOPRAM OXALATE
  18. TOBRAMYCIN. [Concomitant]
     Active Substance: TOBRAMYCIN
  19. ONDANSETRON [Concomitant]
     Active Substance: ONDANSETRON
     Indication: NAUSEA
     Dosage: 1 TAB, BID
     Route: 048
  20. PANCRELIPASE. [Concomitant]
     Active Substance: PANCRELIPASE
     Dosage: 5 CAPSULES WITH MEALS AND 3 CAPS WITH 3 SNACKS
  21. ALBUTEROL [SALBUTAMOL] [Concomitant]
     Active Substance: ALBUTEROL
     Indication: WHEEZING
     Dosage: 2 PUFFS EVERY 4 HOURS
  22. ALEVE [Concomitant]
     Active Substance: NAPROXEN SODIUM
     Dosage: 220 MG
  23. PULMOZYME [Concomitant]
     Active Substance: DORNASE ALFA
  24. SODIUM CHLORIDE. [Concomitant]
     Active Substance: SODIUM CHLORIDE
     Indication: NASAL DRYNESS
     Dosage: 4 MILLILITER, BID
  25. AZELASTINE;FLUTICASONE [Concomitant]
     Indication: SINUS DISORDER
     Dosage: 2 SPRAYS, BID
     Route: 045
  26. AZTREONAM LYSINE [Concomitant]
     Active Substance: AZTREONAM LYSINE
     Dosage: 1 VIAL, TID ON 28 DAYS ON AND 28 DAYS OFF
  27. OMEPRAZOLE. [Concomitant]
     Active Substance: OMEPRAZOLE
     Dosage: 1 CAP, QD
     Route: 048

REACTIONS (12)
  - Cholecystitis acute [Recovering/Resolving]
  - Enterococcus test positive [Recovering/Resolving]
  - Hyponatraemia [Recovering/Resolving]
  - Hyperbilirubinaemia [Recovering/Resolving]
  - Vascular device infection [Recovering/Resolving]
  - Liver function test increased [Recovering/Resolving]
  - Blood glucose increased [Recovering/Resolving]
  - Cholangitis [Recovering/Resolving]
  - Acute kidney injury [Recovering/Resolving]
  - Bile duct stone [Recovering/Resolving]
  - Sepsis [Recovering/Resolving]
  - Hyperkalaemia [Recovering/Resolving]

NARRATIVE: CASE EVENT DATE: 202004
